FAERS Safety Report 23093506 (Version 1)
Quarter: 2023Q4

REPORT INFORMATION
  Report Type: Spontaneous
  Country: US (occurrence: US)
  Receive Date: 20231023
  Receipt Date: 20231023
  Transmission Date: 20240110
  Serious: No
  Sender: FDA-Public Use
  Company Number: US-Teikoku Pharma USA-TPU2023-00541

PATIENT
  Sex: Female

DRUGS (6)
  1. LIDOCAINE PATCH [Suspect]
     Active Substance: LIDOCAINE
     Indication: Back pain
     Dosage: THREE TO FIVE PATCHES A DAY APPLYING THEM TO HER TAIL BONE, ABOVE HER TAIL BONE, HIP ,ABOVE BUTTOCK
     Route: 061
  2. LIDOCAINE PATCH [Suspect]
     Active Substance: LIDOCAINE
     Indication: Arthralgia
  3. GABAPENTIN [Concomitant]
     Active Substance: GABAPENTIN
     Dosage: PATIENT STATED THAT SHE STARTED ALL OF HER MEDICATION ABOUT THE SAME TIME SHE STARTED USING THE LIDO
     Route: 048
  4. IBUPROFEN [Concomitant]
     Active Substance: IBUPROFEN
  5. NAPROSYN [Concomitant]
     Active Substance: NAPROXEN
     Route: 048
  6. CHOLESTEROL [Concomitant]
     Active Substance: CHOLESTEROL

REACTIONS (2)
  - Incorrect dose administered [Unknown]
  - Feeling abnormal [Unknown]
